FAERS Safety Report 9839343 (Version 3)
Quarter: 2014Q2

REPORT INFORMATION
  Report Type: Spontaneous
  Country: JP (occurrence: JP)
  Receive Date: 20140123
  Receipt Date: 20140414
  Transmission Date: 20141212
  Serious: Yes (Life-Threatening, Other)
  Sender: FDA-Public Use
  Company Number: JP-009507513-1401JPN009627

PATIENT
  Age: 83 Year
  Sex: Female
  Weight: 50 kg

DRUGS (9)
  1. PEGINTRON [Suspect]
     Dosage: 10 MCG EVERY 2 WEEK
     Route: 058
     Dates: start: 20081128, end: 20131122
  2. REBETOL [Suspect]
     Dosage: 200 MG, QOD
     Route: 048
     Dates: start: 20081128, end: 20131206
  3. URSO [Concomitant]
     Dosage: 200 MG, TID
     Route: 048
     Dates: start: 20060921, end: 20140314
  4. TAKEPRON [Concomitant]
     Dosage: 15 MG, QD
     Route: 048
     Dates: start: 20060921, end: 20140314
  5. CONIEL [Concomitant]
     Dosage: 4 MG, QD
     Route: 048
     Dates: start: 20130201, end: 20140314
  6. BIO THREE [Concomitant]
     Dosage: 1 G, TID
     Route: 048
     Dates: start: 20110401, end: 20140314
  7. ONEALFA [Concomitant]
     Dosage: 0.5 MG, QD
     Route: 048
     Dates: start: 20060921, end: 20140314
  8. RIZE [Concomitant]
     Dosage: 5 MG, BID
     Route: 048
     Dates: start: 20060921, end: 20140314
  9. GOODMIN [Concomitant]
     Dosage: 0.25 MG, QD
     Route: 048
     Dates: start: 20060921, end: 20140314

REACTIONS (3)
  - Agranulocytosis [Not Recovered/Not Resolved]
  - Hypertension [Unknown]
  - Gastrooesophageal reflux disease [Unknown]
